FAERS Safety Report 23454142 (Version 2)
Quarter: 2024Q1

REPORT INFORMATION
  Report Type: Report from Study
  Country: US (occurrence: US)
  Receive Date: 20240130
  Receipt Date: 20240304
  Transmission Date: 20240409
  Serious: No
  Sender: FDA-Public Use
  Company Number: US-ACADIA PHARMACEUTICALS INC.-ACA-2024-PIM-000063

PATIENT
  Sex: Male

DRUGS (2)
  1. NUPLAZID [Suspect]
     Active Substance: PIMAVANSERIN TARTRATE
     Indication: Parkinson^s disease psychosis
     Dosage: 34 MILLIGRAM, QD
     Route: 048
     Dates: start: 20240105
  2. MELATONIN [Concomitant]
     Active Substance: MELATONIN

REACTIONS (4)
  - Condition aggravated [Unknown]
  - Insomnia [Unknown]
  - Hallucination [Unknown]
  - Drug ineffective [Not Recovered/Not Resolved]
